FAERS Safety Report 8438808-8 (Version None)
Quarter: 2012Q2

REPORT INFORMATION
  Report Type: 
  Country: None (occurrence: None)
  Receive Date: 20120606
  Receipt Date: 20120525
  Transmission Date: 20120825
  Serious: Yes (Hospitalization)
  Sender: FDA-Public Use
  Company Number: WAES 1205USA04740

PATIENT
  Age: 62 Year
  Sex: Female
  Weight: 88.4514 kg

DRUGS (11)
  1. AMBIEN [Concomitant]
  2. DILANTIN [Concomitant]
  3. ALLEGRA [Concomitant]
  4. CYMBALTA [Concomitant]
  5. CRESTOR [Suspect]
     Indication: HYPERCHOLESTEROLAEMIA
     Dosage: 5 MG/QHS/PO
     Route: 048
     Dates: start: 20090930, end: 20101219
  6. LOTENSION (BENAZEPRIL HYDROCHLORIDE) [Concomitant]
  7. CLONIDINE [Concomitant]
  8. ZOCOR [Suspect]
     Indication: HYPERCHOLESTEROLAEMIA
     Dosage: 10 MG/QHS/PO
     Route: 048
     Dates: end: 20101219
  9. NEXIUM [Concomitant]
  10. PREMARIN [Concomitant]
  11. BLINDED THERAPY [Concomitant]

REACTIONS (8)
  - DEMENTIA [None]
  - RENAL FAILURE [None]
  - BLOOD PRESSURE INCREASED [None]
  - METABOLIC DISORDER [None]
  - DELIRIUM [None]
  - UNRESPONSIVE TO STIMULI [None]
  - MENTAL STATUS CHANGES [None]
  - TOXIC ENCEPHALOPATHY [None]
